FAERS Safety Report 26167845 (Version 2)
Quarter: 2025Q4

REPORT INFORMATION
  Report Type: Spontaneous
  Country: US (occurrence: US)
  Receive Date: 20251217
  Receipt Date: 20251222
  Transmission Date: 20260118
  Serious: Yes (Other)
  Sender: ROCHE
  Company Number: US-ROCHE-10000457431

PATIENT
  Sex: Female

DRUGS (4)
  1. XOLAIR PFS [Suspect]
     Active Substance: OMALIZUMAB
     Indication: Idiopathic urticaria
     Route: 058
     Dates: start: 202503
  2. XOLAIR PFS [Suspect]
     Active Substance: OMALIZUMAB
  3. CUVITRU [Concomitant]
     Active Substance: HUMAN IMMUNOGLOBULIN G
  4. XEMBIFY [Concomitant]
     Active Substance: HUMAN IMMUNOGLOBULIN G

REACTIONS (4)
  - Anaphylactic reaction [Unknown]
  - Heart rate increased [Unknown]
  - Dyspnoea [Unknown]
  - Off label use [Unknown]
